FAERS Safety Report 24744248 (Version 1)
Quarter: 2024Q4

REPORT INFORMATION
  Report Type: Spontaneous
  Country: US (occurrence: US)
  Receive Date: 20241217
  Receipt Date: 20241217
  Transmission Date: 20250115
  Serious: Yes (Other)
  Sender: COOPERSURGICAL
  Company Number: US-COOPERSURGICAL, INC.-2024CPS003866

PATIENT
  Age: 24 Year
  Sex: Female
  Weight: 74.83 kg

DRUGS (1)
  1. PARAGARD T 380A [Suspect]
     Active Substance: COPPER
     Indication: Contraception
     Dosage: UNK
     Route: 015
     Dates: start: 20140827

REACTIONS (11)
  - Ectopic pregnancy [Recovered/Resolved]
  - Device breakage [Recovered/Resolved]
  - Foreign body in reproductive tract [Recovered/Resolved]
  - Complication of device removal [Recovered/Resolved]
  - Pelvic pain [Unknown]
  - Heavy menstrual bleeding [Unknown]
  - Neck pain [Unknown]
  - Palpitations [Unknown]
  - Ankle fracture [Unknown]
  - Breast disorder [Unknown]
  - Obesity [Unknown]

NARRATIVE: CASE EVENT DATE: 20161201
